FAERS Safety Report 14944887 (Version 1)
Quarter: 2018Q2

REPORT INFORMATION
  Report Type: Spontaneous
  Country: FR (occurrence: FR)
  Receive Date: 20180529
  Receipt Date: 20180529
  Transmission Date: 20180711
  Serious: Yes (Other)
  Sender: FDA-Public Use
  Company Number: FR-AMGEN-FRASP2018071577

PATIENT
  Age: 62 Year
  Sex: Male
  Weight: 80 kg

DRUGS (4)
  1. PREVISCAN (FLUINDIONE) [Concomitant]
     Active Substance: FLUINDIONE
  2. MOPRAL [Concomitant]
     Active Substance: OMEPRAZOLE
  3. ENBREL [Suspect]
     Active Substance: ETANERCEPT
     Indication: RHEUMATOID ARTHRITIS
     Dosage: UNK
     Route: 058
     Dates: start: 200701, end: 201407
  4. COAPROVEL [Concomitant]
     Active Substance: HYDROCHLOROTHIAZIDE\IRBESARTAN

REACTIONS (1)
  - Extranodal marginal zone B-cell lymphoma (MALT type) [Recovered/Resolved]

NARRATIVE: CASE EVENT DATE: 201406
